FAERS Safety Report 5419644-3 (Version None)
Quarter: 2007Q3

REPORT INFORMATION
  Report Type: 
  Country: None (occurrence: None)
  Receive Date: 20070820
  Receipt Date: 20070815
  Transmission Date: 20080115
  Serious: Yes (Life-Threatening, Other)
  Sender: FDA-Public Use
  Company Number: US-MERCK-0707USA01910

PATIENT
  Age: 64 Year
  Sex: Female
  Weight: 77 kg

DRUGS (2)
  1. FOSAMAX [Suspect]
     Indication: OSTEOPOROSIS
     Route: 048
     Dates: start: 20070329, end: 20070101
  2. FOSAMAX [Suspect]
     Indication: OSTEOPENIA
     Route: 048
     Dates: start: 20070329, end: 20070101

REACTIONS (1)
  - ATRIAL FIBRILLATION [None]
